FAERS Safety Report 6396103-5 (Version None)
Quarter: 2009Q4

REPORT INFORMATION
  Report Type: 
  Country: None (occurrence: None)
  Receive Date: 20091009
  Receipt Date: 20091006
  Transmission Date: 20100525
  Serious: Yes (Death, Hospitalization, Other)
  Sender: FDA-Public Use
  Company Number: US-BAXTER-2009BH010883

PATIENT
  Age: 82 Year
  Sex: Male

DRUGS (7)
  1. HEPARIN SODIUM INJECTION [Suspect]
     Indication: HEART VALVE REPLACEMENT
     Route: 065
     Dates: start: 20080124
  2. NEXIUM [Concomitant]
     Indication: DRUG USE FOR UNKNOWN INDICATION
     Route: 065
  3. POTASSIUM CHLORIDE [Concomitant]
     Indication: DRUG USE FOR UNKNOWN INDICATION
     Route: 065
  4. GEMFIBROZIL [Concomitant]
     Indication: DRUG USE FOR UNKNOWN INDICATION
     Route: 065
  5. ATENOLOL [Concomitant]
     Indication: DRUG USE FOR UNKNOWN INDICATION
     Route: 065
  6. FUROSEMIDE [Concomitant]
     Indication: DRUG USE FOR UNKNOWN INDICATION
     Route: 065
  7. WARFARIN SODIUM [Concomitant]
     Indication: DRUG USE FOR UNKNOWN INDICATION
     Route: 065

REACTIONS (7)
  - ACUTE RESPIRATORY DISTRESS SYNDROME [None]
  - CARDIAC VALVE DISEASE [None]
  - DRY GANGRENE [None]
  - HYPERSENSITIVITY [None]
  - INFECTION [None]
  - RENAL FAILURE [None]
  - RESPIRATORY DISTRESS [None]
